FAERS Safety Report 10564839 (Version 2)
Quarter: 2014Q4

REPORT INFORMATION
  Report Type: Spontaneous
  Country: BR (occurrence: BR)
  Receive Date: 20141105
  Receipt Date: 20141113
  Transmission Date: 20150529
  Serious: No
  Sender: FDA-Public Use
  Company Number: BR-AMGEN-BRASP2014085248

PATIENT
  Sex: Female

DRUGS (5)
  1. METFORMIN [Concomitant]
     Active Substance: METFORMIN HYDROCHLORIDE
     Dosage: UNK
  2. OLCADIL [Concomitant]
     Active Substance: CLOXAZOLAM
     Dosage: UNK
  3. GLIBENCLAMIDE [Concomitant]
     Active Substance: GLYBURIDE
     Dosage: UNK
  4. PAROXETINE HYDROCHLORIDE. [Concomitant]
     Active Substance: PAROXETINE HYDROCHLORIDE
     Dosage: UNK
  5. ENBREL [Suspect]
     Active Substance: ETANERCEPT
     Indication: PSORIATIC ARTHROPATHY
     Dosage: 50 MG, QWK
     Route: 065
     Dates: start: 201408, end: 2014

REACTIONS (12)
  - Psoriasis [Not Recovered/Not Resolved]
  - Tonsillitis [Recovered/Resolved]
  - Abdominal pain upper [Unknown]
  - Abdominal distension [Not Recovered/Not Resolved]
  - Skin exfoliation [Not Recovered/Not Resolved]
  - Pharyngitis [Unknown]
  - Lymphadenopathy [Unknown]
  - Pruritus generalised [Unknown]
  - Ear infection [Recovered/Resolved]
  - Arthralgia [Not Recovered/Not Resolved]
  - Renal cyst [Not Recovered/Not Resolved]
  - Pain [Unknown]

NARRATIVE: CASE EVENT DATE: 2014
